FAERS Safety Report 21223837 (Version 2)
Quarter: 2022Q3

REPORT INFORMATION
  Report Type: Spontaneous
  Country: CA (occurrence: CA)
  Receive Date: 20220817
  Receipt Date: 20220822
  Transmission Date: 20221027
  Serious: Yes (Hospitalization, Other)
  Sender: FDA-Public Use
  Company Number: CA-PFIZER INC-202200120764

PATIENT
  Age: 62 Year
  Sex: Male
  Weight: 28.118 kg

DRUGS (8)
  1. REVATIO [Suspect]
     Active Substance: SILDENAFIL CITRATE
     Indication: Pulmonary hypertension
     Dosage: 20 MG
     Route: 048
  2. REVATIO [Suspect]
     Active Substance: SILDENAFIL CITRATE
     Dosage: 20 MG
     Route: 048
  3. ATORVASTATIN [Concomitant]
     Active Substance: ATORVASTATIN
     Dosage: UNK
  4. FUROSEMIDE [Concomitant]
     Active Substance: FUROSEMIDE
     Dosage: UNK
  5. OPSUMIT [Concomitant]
     Active Substance: MACITENTAN
     Dosage: UNK
  6. PERINDOPRIL [Concomitant]
     Active Substance: PERINDOPRIL
     Dosage: UNK
  7. TRIUMEQ [Concomitant]
     Active Substance: ABACAVIR SULFATE\DOLUTEGRAVIR SODIUM\LAMIVUDINE
     Dosage: UNK
  8. UPTRAVI [Concomitant]
     Active Substance: SELEXIPAG
     Dosage: UNK

REACTIONS (5)
  - Gastric stenosis [Recovered/Resolved]
  - Intestinal obstruction [Recovered/Resolved]
  - Weight decreased [Recovering/Resolving]
  - Vomiting [Recovering/Resolving]
  - Headache [Recovering/Resolving]

NARRATIVE: CASE EVENT DATE: 20220101
